FAERS Safety Report 5244944-X (Version None)
Quarter: 2007Q1

REPORT INFORMATION
  Report Type: 
  Country: None (occurrence: None)
  Receive Date: 20070223
  Receipt Date: 20070212
  Transmission Date: 20070707
  Serious: Yes (Death, Life-Threatening, Hospitalization)
  Sender: FDA-Public Use
  Company Number: CA-JNJFOC-20060301106

PATIENT
  Sex: Female
  Weight: 77 kg

DRUGS (14)
  1. REMICADE [Suspect]
     Indication: POLYARTHRITIS
     Dosage: 34 DOSES
     Route: 042
     Dates: start: 20010113, end: 20060123
  2. MTX [Concomitant]
     Indication: POLYARTHRITIS
     Route: 048
  3. PREDNISONE 50MG TAB [Concomitant]
     Indication: POLYARTHRITIS
     Route: 048
  4. NOVOSEMIDE [Concomitant]
     Indication: HYPERTENSION
     Dosage: 40 MG EVEN DAYS, 30 MG ODD DAYS
     Route: 048
  5. LOSEC [Concomitant]
     Indication: PROPHYLAXIS
     Route: 048
  6. K-DUR 10 [Concomitant]
     Indication: PROPHYLAXIS
     Route: 048
  7. APO-FOLIC [Concomitant]
     Route: 048
  8. PREMARIN [Concomitant]
     Route: 048
  9. PREMARIN [Concomitant]
     Route: 048
  10. ASPIRIN [Concomitant]
     Route: 048
  11. COZAAR [Concomitant]
     Route: 048
  12. NOVO-METOPROLOL [Concomitant]
     Dosage: 50 MG, 1/2 TABLET, 2 IN 1 DAY
     Route: 048
  13. ATIVAN [Concomitant]
  14. SYNTHROID [Concomitant]

REACTIONS (3)
  - GASTROINTESTINAL CARCINOMA [None]
  - PNEUMONIA [None]
  - RENAL FAILURE [None]
